FAERS Safety Report 8538664-3 (Version None)
Quarter: 2012Q3

REPORT INFORMATION
  Report Type: 
  Country: None (occurrence: None)
  Receive Date: 20120718
  Receipt Date: 20120718
  Transmission Date: 20120928
  Serious: Yes (Hospitalization)
  Sender: FDA-Public Use
  Company Number: None

PATIENT
  Age: 57 Year
  Sex: Female
  Weight: 57.1532 kg

DRUGS (6)
  1. BAYER GADAVIST GADOVIST [Suspect]
     Dosage: 7
     Dates: start: 20120619
  2. LEVOTHYROXINE SODIUM [Concomitant]
  3. SAVELLA [Concomitant]
  4. HUMIRA [Concomitant]
  5. GABAPENTIN [Concomitant]
  6. METOPROLOL TARTRATE [Concomitant]

REACTIONS (8)
  - NAUSEA [None]
  - RETCHING [None]
  - THINKING ABNORMAL [None]
  - SYNCOPE [None]
  - FEELING ABNORMAL [None]
  - ASTHENIA [None]
  - FEELING HOT [None]
  - LOSS OF CONSCIOUSNESS [None]
